FAERS Safety Report 10802676 (Version 3)
Quarter: 2015Q1

REPORT INFORMATION
  Report Type: Spontaneous
  Country: US (occurrence: US)
  Receive Date: 20150217
  Receipt Date: 20150326
  Transmission Date: 20150721
  Serious: Yes (Hospitalization)
  Sender: FDA-Public Use
  Company Number: US-UNITED THERAPEUTICS-UNT-2015-001241

PATIENT
  Age: 24 Year
  Sex: Female
  Weight: 75.28 kg

DRUGS (6)
  1. ORENITRAM [Suspect]
     Active Substance: TREPROSTINIL
     Dosage: UNK
  2. ORENITRAM [Suspect]
     Active Substance: TREPROSTINIL
     Indication: PULMONARY ARTERIAL HYPERTENSION
     Dosage: 0.125 MG, Q8H
     Route: 048
     Dates: start: 20150119
  3. ORENITRAM [Suspect]
     Active Substance: TREPROSTINIL
     Dosage: 5 MG, TID
     Route: 048
  4. ADCIRCA [Concomitant]
     Active Substance: TADALAFIL
     Indication: PRODUCT USED FOR UNKNOWN INDICATION
  5. LETAIRIS [Concomitant]
     Active Substance: AMBRISENTAN
     Indication: PRODUCT USED FOR UNKNOWN INDICATION
  6. ORENITRAM [Suspect]
     Active Substance: TREPROSTINIL
     Dosage: 1.875 MG, TID
     Route: 048

REACTIONS (8)
  - Pain [Unknown]
  - Sinusitis [Unknown]
  - Blood pressure decreased [Unknown]
  - Pain in extremity [Unknown]
  - Paraesthesia [Unknown]
  - Back pain [Recovering/Resolving]
  - Pneumonia [Unknown]
  - Feeling cold [Unknown]

NARRATIVE: CASE EVENT DATE: 201502
